FAERS Safety Report 5389033-9 (Version None)
Quarter: 2007Q3

REPORT INFORMATION
  Report Type: 
  Country: None (occurrence: None)
  Receive Date: 20070713
  Receipt Date: 20070702
  Transmission Date: 20080115
  Serious: Yes (Hospitalization)
  Sender: FDA-Public Use
  Company Number: 2007US001349

PATIENT
  Age: 76 Year
  Sex: Female
  Weight: 72.6 kg

DRUGS (16)
  1. AMEVIVE [Suspect]
     Indication: PSORIASIS
     Dosage: UNK, UNK, INTRAMUSCULAR
     Route: 030
     Dates: start: 20031126, end: 20040211
  2. GLUCOPHAGE [Concomitant]
  3. HUMULIN (INSULIN HUMAN) [Concomitant]
  4. LASIX [Concomitant]
  5. SPIRONOLACTONE [Concomitant]
  6. TOPROL-XL [Concomitant]
  7. PLAVIX [Concomitant]
  8. FOLIC ACID [Concomitant]
  9. PROTONIX [Concomitant]
  10. LANTUS [Concomitant]
  11. LIPITOR [Concomitant]
  12. AVAPRO [Concomitant]
  13. PAXIL [Concomitant]
  14. QUININE SULFATE [Concomitant]
  15. AMBIEN [Concomitant]
  16. MELATONIN (MELATONIN) [Concomitant]

REACTIONS (4)
  - ARTERIAL INSUFFICIENCY [None]
  - PERIPHERAL ARTERIAL OCCLUSIVE DISEASE [None]
  - PNEUMONIA [None]
  - PULMONARY OEDEMA [None]
